FAERS Safety Report 4897177-0 (Version None)
Quarter: 2006Q1

REPORT INFORMATION
  Report Type: 
  Country: None (occurrence: None)
  Receive Date: 20060127
  Receipt Date: 20060120
  Transmission Date: 20060701
  Serious: Yes (Life-Threatening)
  Sender: FDA-Public Use
  Company Number: 2006S1000014

PATIENT
  Age: 2 Day
  Sex: Male

DRUGS (10)
  1. INOMAX [Suspect]
     Indication: LUNG DISORDER
     Dosage: 5 PPM; CONT INH
     Route: 055
     Dates: start: 20060104
  2. INOMAX [Suspect]
     Indication: PROPHYLAXIS
     Dosage: 5 PPM; CONT INH
     Route: 055
     Dates: start: 20060104
  3. CEFOTAXIME SODIUM [Concomitant]
  4. VANCOMYCIN [Concomitant]
  5. HYDROCORTISONE [Concomitant]
  6. DOPAMINE HCL [Concomitant]
  7. EPINEPHRINE [Concomitant]
  8. INSULIN [Concomitant]
  9. MORPHINE [Concomitant]
  10. SODIUM BICARBONATE IN PLASTIC CONTAINER [Concomitant]

REACTIONS (2)
  - PULMONARY HAEMORRHAGE [None]
  - RESPIRATORY DISORDER NEONATAL [None]
